FAERS Safety Report 19908401 (Version 2)
Quarter: 2021Q4

REPORT INFORMATION
  Report Type: Report from Study
  Country: CA (occurrence: CA)
  Receive Date: 20211002
  Receipt Date: 20211203
  Transmission Date: 20220303
  Serious: No
  Sender: FDA-Public Use
  Company Number: CA-ABBVIE-21K-028-4101022-00

PATIENT
  Age: 47 Year
  Sex: Female
  Weight: 84.444 kg

DRUGS (1)
  1. HUMIRA [Suspect]
     Active Substance: ADALIMUMAB
     Indication: Psoriasis
     Route: 058
     Dates: start: 20200724

REACTIONS (8)
  - SARS-CoV-2 test positive [Recovered/Resolved]
  - Psoriasis [Unknown]
  - Pyrexia [Unknown]
  - Taste disorder [Unknown]
  - Parosmia [Unknown]
  - Cough [Unknown]
  - Fatigue [Unknown]
  - Dyspnoea [Unknown]

NARRATIVE: CASE EVENT DATE: 20210401
